FAERS Safety Report 14309113 (Version 1)
Quarter: 2017Q4

REPORT INFORMATION
  Report Type: Spontaneous
  Country: US (occurrence: US)
  Receive Date: 20171219
  Receipt Date: 20171219
  Transmission Date: 20180321
  Serious: Yes (Life-Threatening, Hospitalization)
  Sender: FDA-Public Use
  Company Number: None

PATIENT
  Age: 72 Year
  Sex: Male
  Weight: 99.9 kg

DRUGS (4)
  1. WARFARIN [Suspect]
     Active Substance: WARFARIN
     Indication: AORTIC THROMBOSIS
     Route: 048
     Dates: start: 20160322, end: 20160330
  2. WARFARIN [Suspect]
     Active Substance: WARFARIN
     Indication: EMBOLIC STROKE
     Route: 048
     Dates: start: 20160322, end: 20160330
  3. HEPARIN [Suspect]
     Active Substance: HEPARIN SODIUM
     Indication: AORTIC THROMBOSIS
     Dosage: DOSE - 800 UNITS
     Route: 042
     Dates: start: 20160316, end: 20160329
  4. HEPARIN [Suspect]
     Active Substance: HEPARIN SODIUM
     Indication: EMBOLIC STROKE
     Dosage: DOSE - 800 UNITS
     Route: 042
     Dates: start: 20160316, end: 20160329

REACTIONS (1)
  - Haemorrhage intracranial [None]

NARRATIVE: CASE EVENT DATE: 20160330
